FAERS Safety Report 8771067 (Version 4)
Quarter: 2012Q4

REPORT INFORMATION
  Report Type: 
  Country: US (occurrence: US)
  Receive Date: 20120906
  Receipt Date: 20121003
  Transmission Date: 20130627
  Serious: Yes (Hospitalization, Congenital Anomaly, Other)
  Sender: FDA-Public Use
  Company Number: US-PFIZER INC-2012210112

PATIENT
  Sex: Female
  Weight: 2.5 kg

DRUGS (17)
  1. IBUPROFEN [Suspect]
     Indication: FOETAL EXPOSURE DURING PREGNANCY
     Dosage: 800 mg, 3x/day
     Route: 064
  2. ZOLOFT [Suspect]
     Indication: FOETAL EXPOSURE DURING PREGNANCY
     Dosage: 100 mg, 1x/day
     Route: 064
  3. EFFEXOR [Suspect]
     Indication: FOETAL EXPOSURE DURING PREGNANCY
     Route: 064
  4. VISTARIL [Suspect]
     Indication: FOETAL EXPOSURE DURING PREGNANCY
     Dosage: 25 mg, 3x/day
     Route: 064
  5. TOPAMAX [Suspect]
     Indication: FOETAL EXPOSURE DURING PREGNANCY
     Dosage: 150 mg, 2x/day
     Route: 064
  6. FENTANYL [Suspect]
     Indication: FOETAL EXPOSURE DURING PREGNANCY
     Dosage: 2 ug/ml
     Route: 064
  7. TRAZODONE [Suspect]
     Indication: FOETAL EXPOSURE DURING PREGNANCY
     Route: 064
  8. COLACE [Suspect]
     Indication: FOETAL EXPOSURE DURING PREGNANCY
     Route: 064
  9. OXYTOCIN [Suspect]
     Indication: FOETAL EXPOSURE DURING PREGNANCY
     Route: 064
  10. TERBUTALINE [Suspect]
     Indication: FOETAL EXPOSURE DURING PREGNANCY
     Route: 064
  11. BUPIVACAINE [Suspect]
     Indication: FOETAL EXPOSURE DURING PREGNANCY
     Route: 064
  12. MIRTAZAPINE [Suspect]
     Indication: FOETAL EXPOSURE DURING PREGNANCY
     Route: 064
  13. METFORMIN [Concomitant]
     Indication: FOETAL EXPOSURE DURING PREGNANCY
     Route: 064
  14. OPTINATE [Concomitant]
     Indication: FOETAL EXPOSURE DURING PREGNANCY
     Route: 064
  15. FOLIC ACID [Concomitant]
     Indication: FOETAL EXPOSURE DURING PREGNANCY
     Route: 064
  16. PRENATAL VITAMINS [Concomitant]
     Indication: FOETAL EXPOSURE DURING PREGNANCY
     Route: 064
  17. FERROUS SULFATE [Concomitant]
     Indication: FOETAL EXPOSURE DURING PREGNANCY
     Dosage: 325 mg, 1x/day
     Route: 064

REACTIONS (7)
  - Maternal exposure timing unspecified [Unknown]
  - Foetal heart rate abnormal [Unknown]
  - Otitis media chronic [Not Recovered/Not Resolved]
  - Gastrooesophageal reflux disease [Unknown]
  - Foetal growth restriction [Unknown]
  - Cleft lip and palate [Recovering/Resolving]
  - Speech disorder [Unknown]
